FAERS Safety Report 11490681 (Version 2)
Quarter: 2015Q4

REPORT INFORMATION
  Report Type: Spontaneous
  Country: FR (occurrence: None)
  Receive Date: 20150910
  Receipt Date: 20151028
  Transmission Date: 20160304
  Serious: Yes (Other)
  Sender: FDA-Public Use
  Company Number: FR-MDT-ADR-2015-01755

PATIENT
  Age: 54 Year
  Sex: Male

DRUGS (1)
  1. BACLOFEN (BACLOFEN) [Suspect]
     Active Substance: BACLOFEN
     Indication: ALCOHOLISM

REACTIONS (5)
  - Encephalopathy [None]
  - Overdose [None]
  - Renal failure [None]
  - Off label use [None]
  - Alcoholism [None]
